FAERS Safety Report 5068982-5 (Version None)
Quarter: 2006Q3

REPORT INFORMATION
  Report Type: 
  Country: None (occurrence: None)
  Receive Date: 20060802
  Receipt Date: 20060721
  Transmission Date: 20061208
  Serious: Yes (Hospitalization)
  Sender: FDA-Public Use
  Company Number: JP-BOEHRINGER INGELHEIM PHARMACEUTICALS, INC.-2006-BP-08413NB

PATIENT
  Sex: Female
  Weight: 56 kg

DRUGS (1)
  1. PERSANTINE [Suspect]
     Indication: INVESTIGATION
     Route: 042
     Dates: start: 20060721, end: 20060721

REACTIONS (1)
  - BLOOD PRESSURE DECREASED [None]
